FAERS Safety Report 11610723 (Version 1)
Quarter: 2015Q4

REPORT INFORMATION
  Report Type: Spontaneous
  Country: US (occurrence: US)
  Receive Date: 20151008
  Receipt Date: 20151008
  Transmission Date: 20160304
  Serious: No
  Sender: FDA-Public Use
  Company Number: US-PAR PHARMACEUTICAL, INC-2014SCPR009297

PATIENT

DRUGS (4)
  1. FENTANYL TRANSDERMAL SYSTEM [Suspect]
     Active Substance: FENTANYL
     Indication: NECK PAIN
  2. FENTANYL TRANSDERMAL SYSTEM [Suspect]
     Active Substance: FENTANYL
     Indication: BACK PAIN
     Dosage: 1 PATCH, EVERY 48 HOURS
     Route: 062
     Dates: start: 20140723, end: 201408
  3. MYLAN FENTANYL [Concomitant]
     Indication: BACK PAIN
     Dosage: 1 PATCH, EVERY 48 HOURS
     Route: 062
     Dates: start: 20140724
  4. MYLAN FENTANYL [Concomitant]
     Indication: NECK PAIN

REACTIONS (3)
  - Feeling abnormal [Recovered/Resolved]
  - Drug effect increased [Recovered/Resolved]
  - Inappropriate schedule of drug administration [Unknown]

NARRATIVE: CASE EVENT DATE: 20140723
